FAERS Safety Report 16908543 (Version 1)
Quarter: 2019Q4

REPORT INFORMATION
  Report Type: Spontaneous
  Country: US (occurrence: US)
  Receive Date: 20191011
  Receipt Date: 20191011
  Transmission Date: 20200122
  Serious: Yes (Hospitalization, Other)
  Sender: FDA-Public Use
  Company Number: US-HIKMA PHARMACEUTICALS USA INC.-US-H14001-19-49284

PATIENT
  Age: 30 Year
  Sex: Female
  Weight: 67 kg

DRUGS (8)
  1. ROPIVACAINE. [Suspect]
     Active Substance: ROPIVACAINE HYDROCHLORIDE
     Dosage: BOLUS
     Route: 008
  2. ROPIVACAINE. [Suspect]
     Active Substance: ROPIVACAINE HYDROCHLORIDE
     Dosage: BOLUS DOSE OF 3 ML WITH A 20 MINUTE LOCKOUT
     Route: 008
  3. ROPIVACAINE. [Suspect]
     Active Substance: ROPIVACAINE HYDROCHLORIDE
     Indication: ANAESTHESIA
     Dosage: 6 ML/H
     Route: 008
  4. LIDOCAINE. [Suspect]
     Active Substance: LIDOCAINE
     Indication: ANAESTHESIA
     Dosage: A TEST DOSE OF 3 MILLILITERS (ML) LIDOCAINE 1.5% WITH EPINEPHRINE 1:200,000
     Route: 008
  5. LIDOCAINE. [Suspect]
     Active Substance: LIDOCAINE
     Route: 008
  6. FENTANYL. [Suspect]
     Active Substance: FENTANYL
     Dosage: 6 ML/H
     Route: 008
  7. FENTANYL. [Suspect]
     Active Substance: FENTANYL
     Route: 039
  8. FENTANYL. [Suspect]
     Active Substance: FENTANYL
     Indication: ANAESTHESIA
     Dosage: BOLUS DOSE OF 3 ML WITH A 20 MINUTE LOCKOUT
     Route: 008

REACTIONS (3)
  - Horner^s syndrome [Recovered/Resolved]
  - Nerve block [Recovered/Resolved]
  - Exposure during pregnancy [Recovered/Resolved]
